FAERS Safety Report 22100424 (Version 1)
Quarter: 2023Q1

REPORT INFORMATION
  Report Type: Report from Study
  Country: US (occurrence: US)
  Receive Date: 20230316
  Receipt Date: 20230316
  Transmission Date: 20230417
  Serious: Yes (Hospitalization, Other)
  Sender: FDA-Public Use
  Company Number: US-ABBVIE-4341776

PATIENT
  Sex: Male

DRUGS (1)
  1. IMBRUVICA [Suspect]
     Active Substance: IBRUTINIB
     Indication: Chronic lymphocytic leukaemia
     Route: 048
     Dates: start: 201905

REACTIONS (7)
  - Cataract [Unknown]
  - Visual impairment [Unknown]
  - Platelet count decreased [Unknown]
  - Unevaluable event [Unknown]
  - Cataract [Unknown]
  - Arrhythmia [Unknown]
  - Retinal scar [Unknown]
